FAERS Safety Report 10226416 (Version 2)
Quarter: 2014Q2

REPORT INFORMATION
  Report Type: Report from Study
  Country: US (occurrence: US)
  Receive Date: 20140609
  Receipt Date: 20140609
  Transmission Date: 20141212
  Serious: Yes (Hospitalization)
  Sender: FDA-Public Use
  Company Number: US-ABBVIE-14P-163-1237826-00

PATIENT
  Age: 30 Year
  Sex: Female

DRUGS (2)
  1. HUMIRA [Suspect]
     Indication: CROHN^S DISEASE
     Dates: start: 20140308, end: 20140308
  2. ALBUTEROL [Concomitant]
     Indication: PRODUCT USED FOR UNKNOWN INDICATION

REACTIONS (5)
  - Intestinal obstruction [Recovering/Resolving]
  - Abdominal pain [Recovering/Resolving]
  - Crohn^s disease [Recovering/Resolving]
  - Enteritis [Recovering/Resolving]
  - Fistula [Recovering/Resolving]
